FAERS Safety Report 15109301 (Version 2)
Quarter: 2018Q3

REPORT INFORMATION
  Report Type: Report from Study
  Country: None (occurrence: US)
  Receive Date: 20180705
  Receipt Date: 20180810
  Transmission Date: 20181010
  Serious: Yes (Hospitalization)
  Sender: FDA-Public Use
  Company Number: US-ABBVIE-18K-163-2323418-00

PATIENT
  Age: 63 Year
  Sex: Female

DRUGS (5)
  1. HUMIRA [Suspect]
     Active Substance: ADALIMUMAB
     Indication: CROHN^S DISEASE
     Route: 058
  2. HUMIRA [Suspect]
     Active Substance: ADALIMUMAB
     Dosage: DAY 15
     Route: 058
     Dates: start: 20180115, end: 20180115
  3. HUMIRA [Suspect]
     Active Substance: ADALIMUMAB
     Dosage: DAY 1
     Route: 058
     Dates: start: 20180101, end: 20180101
  4. ZOFRAN [Concomitant]
     Active Substance: ONDANSETRON HYDROCHLORIDE
     Indication: NAUSEA
  5. HUMIRA [Suspect]
     Active Substance: ADALIMUMAB
     Route: 058
     Dates: start: 20180129

REACTIONS (13)
  - Device issue [Unknown]
  - Crohn^s disease [Not Recovered/Not Resolved]
  - Vomiting [Unknown]
  - Blood potassium decreased [Recovered/Resolved]
  - Incorrect dose administered [Unknown]
  - Vision blurred [Recovered/Resolved]
  - Migraine [Unknown]
  - Nausea [Unknown]
  - Blood potassium decreased [Unknown]
  - Pruritus generalised [Unknown]
  - Pneumonia [Unknown]
  - Injection site pruritus [Unknown]
  - Abdominal discomfort [Unknown]

NARRATIVE: CASE EVENT DATE: 2018
